FAERS Safety Report 16728208 (Version 1)
Quarter: 2019Q3

REPORT INFORMATION
  Report Type: Spontaneous
  Country: GB (occurrence: GB)
  Receive Date: 20190822
  Receipt Date: 20190822
  Transmission Date: 20191005
  Serious: Yes (Death, Hospitalization)
  Sender: FDA-Public Use
  Company Number: GB-DRREDDYS-GER/UKI/19/0113457

PATIENT
  Age: 60 Year
  Sex: Male

DRUGS (3)
  1. FLUOROURACIL. [Suspect]
     Active Substance: FLUOROURACIL
     Indication: NASOPHARYNGEAL CANCER
     Dates: start: 20190409
  2. DOCETAXEL. [Suspect]
     Active Substance: DOCETAXEL
     Indication: NASOPHARYNGEAL CANCER
     Dates: start: 20190409
  3. CISPLATIN. [Suspect]
     Active Substance: CISPLATIN
     Indication: NASOPHARYNGEAL CANCER
     Dates: start: 20190409

REACTIONS (16)
  - Tachycardia [Fatal]
  - Body temperature increased [Fatal]
  - Malaise [Fatal]
  - Productive cough [Fatal]
  - Oropharyngeal pain [Fatal]
  - Tachypnoea [Fatal]
  - Vomiting [Fatal]
  - Oral candidiasis [Fatal]
  - Nausea [Fatal]
  - Hypotension [Fatal]
  - Malaise [Fatal]
  - Arrhythmia [Fatal]
  - Neutropenic sepsis [Fatal]
  - Hypoxia [Fatal]
  - Hypophagia [Fatal]
  - Stomatitis [Fatal]

NARRATIVE: CASE EVENT DATE: 20190412
